FAERS Safety Report 14635859 (Version 3)
Quarter: 2018Q2

REPORT INFORMATION
  Report Type: Report from Study
  Country: US (occurrence: US)
  Receive Date: 20180314
  Receipt Date: 20180503
  Transmission Date: 20180711
  Serious: Yes (Hospitalization, Other)
  Sender: FDA-Public Use
  Company Number: US-TAKEDA-2018TUS006053

PATIENT
  Age: 31 Year
  Sex: Female

DRUGS (2)
  1. PONATINIB [Suspect]
     Active Substance: PONATINIB
     Indication: CHRONIC MYELOID LEUKAEMIA
     Dosage: 30 MG, QD
     Route: 048
     Dates: start: 201612
  2. PONATINIB [Suspect]
     Active Substance: PONATINIB
     Dosage: 45 MG, UNK
     Route: 048

REACTIONS (19)
  - Platelet count decreased [Unknown]
  - Pain in extremity [Unknown]
  - Hospitalisation [Unknown]
  - Vomiting [Unknown]
  - Post lumbar puncture syndrome [Unknown]
  - Nausea [Unknown]
  - Weight increased [Unknown]
  - Haemoglobin decreased [Unknown]
  - Pain [Unknown]
  - Headache [Unknown]
  - Hepatic enzyme increased [Recovering/Resolving]
  - Complex regional pain syndrome [Unknown]
  - Fluid retention [Unknown]
  - Post-traumatic stress disorder [Unknown]
  - Eye pain [Unknown]
  - White blood cell count increased [Unknown]
  - Visual impairment [Unknown]
  - Intervertebral disc disorder [Unknown]
  - Epidural blood patch [Unknown]

NARRATIVE: CASE EVENT DATE: 20180214
